FAERS Safety Report 7289202-7 (Version None)
Quarter: 2011Q1

REPORT INFORMATION
  Report Type: 
  Country: None (occurrence: None)
  Receive Date: 20110211
  Receipt Date: 20110202
  Transmission Date: 20110831
  Serious: Yes (Other)
  Sender: FDA-Public Use
  Company Number: US-ASTRAZENECA-2010SE08488

PATIENT
  Age: 581 Month
  Sex: Female

DRUGS (2)
  1. NEXIUM [Suspect]
     Route: 048
     Dates: end: 20100801
  2. PRILOSEC [Suspect]
     Route: 048

REACTIONS (9)
  - GALLBLADDER OPERATION [None]
  - CHOLELITHIASIS [None]
  - SURGERY [None]
  - DRUG INEFFECTIVE [None]
  - DRUG DOSE OMISSION [None]
  - THROAT IRRITATION [None]
  - GASTROOESOPHAGEAL REFLUX DISEASE [None]
  - PNEUMONIA [None]
  - MIDDLE INSOMNIA [None]
